FAERS Safety Report 4383242-3 (Version None)
Quarter: 2004Q2

REPORT INFORMATION
  Report Type: 
  Country: None (occurrence: None)
  Receive Date: 20040618
  Receipt Date: 20040609
  Transmission Date: 20050107
  Serious: Yes (Hospitalization)
  Sender: FDA-Public Use
  Company Number: 2004-06-0430

PATIENT
  Age: 36 Year
  Sex: Male

DRUGS (2)
  1. RIBAVIRIN [Suspect]
  2. INFERAX (INTERFERON ALFACON-1) [Suspect]
     Dosage: 18 MCG QD
     Dates: start: 20030901

REACTIONS (1)
  - TRANSIENT ISCHAEMIC ATTACK [None]
